FAERS Safety Report 9748454 (Version 1)
Quarter: 2013Q4

REPORT INFORMATION
  Report Type: Report from Study
  Country: GB (occurrence: GB)
  Receive Date: 20131212
  Receipt Date: 20131212
  Transmission Date: 20140711
  Serious: Yes (Hospitalization)
  Sender: FDA-Public Use
  Company Number: GB-CELGENEUS-167-21880-13115738

PATIENT
  Age: 43 Year
  Sex: Male
  Weight: 96 kg

DRUGS (8)
  1. REVLIMID [Suspect]
     Indication: PLASMA CELL MYELOMA
     Route: 048
     Dates: start: 20131120, end: 20131126
  2. ACICLOVIR [Concomitant]
     Indication: PROPHYLAXIS
     Route: 065
     Dates: start: 20131004
  3. AMLODIPINE [Concomitant]
     Indication: HYPERTENSION
     Route: 065
     Dates: start: 20131025
  4. CO-TRIMOXAZOLE [Concomitant]
     Indication: PROPHYLAXIS
     Route: 065
     Dates: start: 20131025
  5. NEORAL [Concomitant]
     Indication: GRAFT VERSUS HOST DISEASE
     Route: 065
     Dates: start: 20131115
  6. PARACETAMOL [Concomitant]
     Indication: PAIN
     Route: 065
     Dates: start: 201207
  7. PENICILLIN V [Concomitant]
     Indication: PROPHYLAXIS
     Route: 065
     Dates: start: 20131024
  8. RANITIDINE [Concomitant]
     Indication: DYSPEPSIA
     Route: 065
     Dates: start: 201207

REACTIONS (3)
  - Graft versus host disease [Not Recovered/Not Resolved]
  - Rash maculo-papular [Not Recovered/Not Resolved]
  - Herpes zoster [Not Recovered/Not Resolved]
